FAERS Safety Report 11069327 (Version 1)
Quarter: 2015Q2

REPORT INFORMATION
  Report Type: Spontaneous
  Country: CA (occurrence: CA)
  Receive Date: 20150427
  Receipt Date: 20150427
  Transmission Date: 20150821
  Serious: Yes (Death)
  Sender: FDA-Public Use
  Company Number: CA-JNJFOC-20150418135

PATIENT
  Age: 52 Year
  Sex: Male

DRUGS (1)
  1. APAP EXTRA STRENGTH [Suspect]
     Active Substance: ACETAMINOPHEN
     Indication: BACK PAIN
     Route: 048

REACTIONS (5)
  - Overdose [Fatal]
  - Somnolence [None]
  - Confusional state [None]
  - Exposure via ingestion [None]
  - Intentional overdose [None]
